FAERS Safety Report 6337522-2 (Version None)
Quarter: 2009Q3

REPORT INFORMATION
  Report Type: 
  Country: None (occurrence: None)
  Receive Date: 20090901
  Receipt Date: 20090901
  Transmission Date: 20100115
  Serious: Yes (Hospitalization)
  Sender: FDA-Public Use
  Company Number: None

PATIENT
  Age: 18 Year
  Sex: Female
  Weight: 47.1741 kg

DRUGS (1)
  1. DROSPIRENONE AND ETHINYL ESTRADIOL [Suspect]
     Indication: MENSTRUATION IRREGULAR
     Dosage: 1 DAILY PO
     Route: 048
     Dates: start: 20070506, end: 20090831

REACTIONS (6)
  - ACTIVITIES OF DAILY LIVING IMPAIRED [None]
  - DYSSTASIA [None]
  - GALLBLADDER DISORDER [None]
  - HYPOPHAGIA [None]
  - LOSS OF EMPLOYMENT [None]
  - WEIGHT DECREASED [None]
